FAERS Safety Report 18917168 (Version 1)
Quarter: 2021Q1

REPORT INFORMATION
  Report Type: Spontaneous
  Country: JP (occurrence: JP)
  Receive Date: 20210219
  Receipt Date: 20210219
  Transmission Date: 20210420
  Serious: Yes (Hospitalization)
  Sender: FDA-Public Use
  Company Number: JP-ABBVIE-21K-087-3780903-00

PATIENT
  Age: 40 Year
  Sex: Male

DRUGS (2)
  1. DUODOPA [Suspect]
     Active Substance: CARBIDOPA\LEVODOPA
     Indication: PARKINSON^S DISEASE
     Route: 050
  2. DUODOPA [Suspect]
     Active Substance: CARBIDOPA\LEVODOPA

REACTIONS (5)
  - Inflammation [Recovering/Resolving]
  - Stoma site pain [Recovering/Resolving]
  - Stoma site hypergranulation [Unknown]
  - Therapeutic product effect decreased [Unknown]
  - Nasopharyngitis [Unknown]
